FAERS Safety Report 11411408 (Version 3)
Quarter: 2015Q3

REPORT INFORMATION
  Report Type: Spontaneous
  Country: US (occurrence: US)
  Receive Date: 20150821
  Receipt Date: 20150903
  Transmission Date: 20151125
  Serious: No
  Sender: FDA-Public Use
  Company Number: US-ELI_LILLY_AND_COMPANY-US201004008332

PATIENT
  Age: 30 Year
  Sex: Female

DRUGS (4)
  1. HUMALOG [Suspect]
     Active Substance: INSULIN LISPRO
     Indication: GESTATIONAL DIABETES
     Dosage: 2 U, AS NEEDED
     Dates: start: 20091211
  2. DOCOSAHEXANOIC ACID [Concomitant]
  3. PRENATAL [Concomitant]
     Active Substance: VITAMINS
  4. HUMULIN N [Suspect]
     Active Substance: INSULIN HUMAN
     Indication: GESTATIONAL DIABETES
     Dosage: 8 U, EACH EVENING
     Dates: start: 20100324

REACTIONS (4)
  - Vomiting in pregnancy [Unknown]
  - Nausea [Unknown]
  - Exposure during pregnancy [Unknown]
  - Blood glucose decreased [Unknown]

NARRATIVE: CASE EVENT DATE: 20100428
